FAERS Safety Report 8100096-X (Version None)
Quarter: 2012Q1

REPORT INFORMATION
  Report Type: 
  Country: None (occurrence: None)
  Receive Date: 20120129
  Receipt Date: 20111123
  Transmission Date: 20120608
  Serious: No
  Sender: FDA-Public Use
  Company Number: US-ABBOTT-11P-163-0878902-00

PATIENT
  Age: 58 Year
  Sex: Male

DRUGS (1)
  1. HUMIRA [Suspect]
     Indication: RHEUMATOID ARTHRITIS
     Dates: start: 20111102

REACTIONS (5)
  - ARTHRALGIA [None]
  - HEART RATE INCREASED [None]
  - PAIN IN JAW [None]
  - FEELING ABNORMAL [None]
  - JOINT SWELLING [None]
